FAERS Safety Report 8187164-1 (Version None)
Quarter: 2012Q1

REPORT INFORMATION
  Report Type: 
  Country: None (occurrence: None)
  Receive Date: 20120302
  Receipt Date: 20120216
  Transmission Date: 20120608
  Serious: Yes (Hospitalization)
  Sender: FDA-Public Use
  Company Number: B0783557A

PATIENT
  Sex: Male

DRUGS (4)
  1. CEFTAZIDIME SODIUM [Suspect]
     Indication: PYREXIA
     Dosage: UNK /UNK /INTRAVENOUS
     Route: 042
     Dates: start: 20111202, end: 20111220
  2. AMPHOTERICIN B [Suspect]
     Indication: PRODUCT USED FOR UNKNOWN INDICATION
     Dosage: UNK /UNK /UNKNOWN
  3. TEICOPLANIN (FORMULATION UNKNOWN) (TEICOPLANIN) [Suspect]
     Indication: PYREXIA
     Dosage: UNK/ UNK/ INTRAVENOUS
     Route: 042
     Dates: start: 20111202, end: 20111218
  4. CYCLOSPORINE [Suspect]
     Indication: APLASTIC ANAEMIA
     Dosage: UNK /UNK/ ORAL
     Route: 048
     Dates: start: 20111111

REACTIONS (1)
  - ANAPHYLACTIC REACTION [None]
